FAERS Safety Report 6209020-8 (Version None)
Quarter: 2009Q2

REPORT INFORMATION
  Report Type: 
  Country: None (occurrence: None)
  Receive Date: 20090529
  Receipt Date: 20090522
  Transmission Date: 20091009
  Serious: Yes (Other)
  Sender: FDA-Public Use
  Company Number: PHEH2008US04276

PATIENT
  Sex: Female
  Weight: 68.481 kg

DRUGS (2)
  1. AREDIA [Suspect]
  2. ZOMETA [Suspect]

REACTIONS (13)
  - ANHEDONIA [None]
  - ANXIETY [None]
  - DEBRIDEMENT [None]
  - DISABILITY [None]
  - DYSKINESIA [None]
  - INJURY [None]
  - JAW FRACTURE [None]
  - OSTEOMYELITIS [None]
  - OSTEONECROSIS [None]
  - PAIN [None]
  - PAIN IN JAW [None]
  - TOOTH EXTRACTION [None]
  - VULVOVAGINAL CANDIDIASIS [None]
